FAERS Safety Report 5662362-7 (Version None)
Quarter: 2008Q1

REPORT INFORMATION
  Report Type: 
  Country: None (occurrence: None)
  Receive Date: 20080313
  Receipt Date: 20080229
  Transmission Date: 20080703
  Serious: Yes (Other)
  Sender: FDA-Public Use
  Company Number: TW-RANBAXY-2008RR-13451

PATIENT

DRUGS (5)
  1. GABAPENTIN BASICS B 600MG FILMTABLETTEN [Suspect]
     Indication: NEURALGIA
     Dosage: 600 MG, QD
  2. GABAPENTIN BASICS B 600MG FILMTABLETTEN [Suspect]
     Dosage: 1200 MG, QD
  3. IMIPRAMINE [Concomitant]
     Indication: NEURALGIA
  4. MORPHINE [Concomitant]
     Indication: NEURALGIA
  5. ACETAMINOPHEN [Concomitant]
     Indication: HYPERAESTHESIA
     Dosage: UNK

REACTIONS (1)
  - CHOREA [None]
